FAERS Safety Report 21916300 (Version 1)
Quarter: 2023Q1

REPORT INFORMATION
  Report Type: Spontaneous
  Country: US (occurrence: US)
  Receive Date: 20230126
  Receipt Date: 20230126
  Transmission Date: 20230418
  Serious: No
  Sender: FDA-Public Use
  Company Number: US-ALLERGAN-2220658US

PATIENT
  Sex: Female
  Weight: 72.121 kg

DRUGS (5)
  1. BOTOX [Suspect]
     Active Substance: ONABOTULINUMTOXINA
     Indication: Headache
     Dosage: UNK UNK, SINGLE
  2. TYVASO [Suspect]
     Active Substance: TREPROSTINIL
     Indication: Pulmonary arterial hypertension
     Dosage: 48 ?G
     Route: 055
     Dates: start: 202206
  3. TYVASO [Suspect]
     Active Substance: TREPROSTINIL
     Dosage: 54 ?G
     Route: 055
     Dates: start: 20220615, end: 202206
  4. TYVASO [Suspect]
     Active Substance: TREPROSTINIL
     Dosage: 18 ?G - 54  ?G, QID
     Route: 055
  5. TYVASO [Suspect]
     Active Substance: TREPROSTINIL
     Dosage: UNK
     Route: 055
     Dates: start: 20220525

REACTIONS (10)
  - Lethargy [Recovering/Resolving]
  - Laziness [Recovering/Resolving]
  - Blood pressure decreased [Unknown]
  - Fungal skin infection [Unknown]
  - Drug ineffective [Unknown]
  - Fatigue [Unknown]
  - Dyspnoea [Unknown]
  - Cough [Unknown]
  - Hypotension [Unknown]
  - Headache [Not Recovered/Not Resolved]
